FAERS Safety Report 21067046 (Version 1)
Quarter: 2022Q3

REPORT INFORMATION
  Report Type: Spontaneous
  Country: US (occurrence: US)
  Receive Date: 20220712
  Receipt Date: 20220712
  Transmission Date: 20221027
  Serious: Yes (Hospitalization, Other)
  Sender: FDA-Public Use
  Company Number: US-ALVOGEN-2022-ALVOGEN-120616

PATIENT
  Age: 64 Year
  Sex: Male

DRUGS (2)
  1. DOXORUBICIN [Suspect]
     Active Substance: DOXORUBICIN
     Indication: Osteosarcoma metastatic
     Dosage: OVER 4 HOURS ON DAYS 1 THROUGH 3
  2. CISPLATIN [Suspect]
     Active Substance: CISPLATIN
     Indication: Osteosarcoma metastatic
     Dosage: OVER 2 HOURS ON DAY 1

REACTIONS (8)
  - Hypervolaemia [Recovered/Resolved]
  - Acute kidney injury [Recovered/Resolved]
  - Hypotension [Unknown]
  - Escherichia bacteraemia [Unknown]
  - Metabolic acidosis [Unknown]
  - Respiratory acidosis [Unknown]
  - Tumour lysis syndrome [Unknown]
  - Cardiac arrest [Unknown]
